FAERS Safety Report 6042053-3 (Version None)
Quarter: 2009Q1

REPORT INFORMATION
  Report Type: 
  Country: None (occurrence: None)
  Receive Date: 20090116
  Receipt Date: 20090112
  Transmission Date: 20090719
  Serious: Yes (Hospitalization)
  Sender: FDA-Public Use
  Company Number: US-JNJFOC-20090102431

PATIENT
  Sex: Female
  Weight: 75.75 kg

DRUGS (3)
  1. DURAGESIC-100 [Suspect]
     Indication: PAIN
     Route: 062
  2. UNSPECIFIED [Concomitant]
     Indication: BREAKTHROUGH PAIN
     Route: 065
  3. UNSPECIFIED [Concomitant]
     Indication: ANXIETY
     Route: 065

REACTIONS (8)
  - ABASIA [None]
  - APPLICATION SITE ULCER [None]
  - CARDIAC ARREST [None]
  - DEHYDRATION [None]
  - DRUG ADMINISTERED AT INAPPROPRIATE SITE [None]
  - THYROID CANCER [None]
  - WITHDRAWAL SYNDROME [None]
  - WRONG TECHNIQUE IN DRUG USAGE PROCESS [None]
